FAERS Safety Report 25757589 (Version 2)
Quarter: 2025Q3

REPORT INFORMATION
  Report Type: Spontaneous
  Country: CN (occurrence: CN)
  Receive Date: 20250903
  Receipt Date: 20250909
  Transmission Date: 20251020
  Serious: Yes (Hospitalization, Other)
  Sender: PFIZER
  Company Number: CN-PFIZER INC-PV202500104486

PATIENT
  Age: 7 Year
  Sex: Male
  Weight: 30 kg

DRUGS (4)
  1. METHOTREXATE SODIUM [Suspect]
     Active Substance: METHOTREXATE SODIUM
     Indication: Bone cancer
     Dosage: 10 G, 1X/DAY
     Route: 041
     Dates: start: 20250718, end: 20250718
  2. VINCRISTINE SULFATE [Suspect]
     Active Substance: VINCRISTINE SULFATE
     Indication: Bone cancer
     Dosage: 1.4 MG, 1X/DAY
     Route: 042
     Dates: start: 20250718, end: 20250718
  3. SODIUM CHLORIDE [Concomitant]
     Active Substance: SODIUM CHLORIDE
     Indication: Bone cancer
     Dosage: 10 ML, 1X/DAY
     Route: 042
     Dates: start: 20250718, end: 20250718
  4. SODIUM CHLORIDE [Concomitant]
     Active Substance: SODIUM CHLORIDE
     Indication: Bone cancer
     Dosage: 500 ML, 1X/DAY
     Route: 041
     Dates: start: 20250718, end: 20250718

REACTIONS (1)
  - Liver injury [Recovering/Resolving]

NARRATIVE: CASE EVENT DATE: 20250719
